FAERS Safety Report 19580206 (Version 1)
Quarter: 2021Q3

REPORT INFORMATION
  Report Type: Spontaneous
  Country: US (occurrence: US)
  Receive Date: 20210720
  Receipt Date: 20210720
  Transmission Date: 20211014
  Serious: Yes (Hospitalization, Other)
  Sender: FDA-Public Use
  Company Number: US-ORG100016242-2021000258

PATIENT
  Age: 58 Year
  Sex: Female
  Weight: 79.5 kg

DRUGS (32)
  1. NALOXONE [Concomitant]
     Active Substance: NALOXONE
     Dosage: 0.04MG=0.1ML, AS INDICATED AS NEEDED
     Route: 041
     Dates: start: 20210309, end: 20210309
  2. SALINE LOCK FLUSH [Concomitant]
     Dosage: 10 ML, AS INDICATED AS NEEDED
     Route: 042
     Dates: start: 20210309, end: 20210309
  3. DILAUDID [Concomitant]
     Active Substance: HYDROMORPHONE HYDROCHLORIDE
     Dosage: 0.4MG=0.2ML, EVERY 5 MINUTES AS NEEDED, PACU 1; MAX 2MG
     Route: 042
     Dates: start: 20210309, end: 20210309
  4. HYDRALAZINE [Concomitant]
     Active Substance: HYDRALAZINE HYDROCHLORIDE
     Dosage: 5 MG= 0.25ML; EVERY 10 MIN AS NEEDED, PACU 1; MAX 20 MG
     Route: 042
     Dates: start: 20210309, end: 20210309
  5. EXPAREL [Suspect]
     Active Substance: BUPIVACAINE
     Dosage: NOT PROVIDED
     Route: 058
     Dates: start: 20210309, end: 20210309
  6. LIDOCAINE. [Suspect]
     Active Substance: LIDOCAINE
     Dosage: 5ML
     Route: 065
     Dates: start: 20210309, end: 20210309
  7. BUPIVACAINE. [Suspect]
     Active Substance: BUPIVACAINE
     Dosage: PF 30ML
     Route: 065
     Dates: start: 20210309, end: 20210309
  8. DIPHENHYDRAMINE. [Concomitant]
     Active Substance: DIPHENHYDRAMINE
     Dosage: 25MG=1CAPS, EVERY 6 HOURS AS NEEDED
     Route: 048
     Dates: start: 20210309, end: 20210309
  9. NCTR [Concomitant]
     Dosage: 60 MG = 3 ML, ONCE
     Route: 042
     Dates: start: 20210309, end: 20210309
  10. MIDAZOLAM. [Concomitant]
     Active Substance: MIDAZOLAM
     Dosage: 2 MG= 2ML, ONCE
     Route: 042
     Dates: start: 20210309, end: 20210309
  11. LABETALOL [Concomitant]
     Active Substance: LABETALOL\LABETALOL HYDROCHLORIDE
     Dosage: 5MG=1ML, EVERY 5MIN AS NEEDED, PACU 1; MAX 30MG
     Route: 041
     Dates: start: 20210309, end: 20210309
  12. HYDROMORPHONE [Concomitant]
     Active Substance: HYDROMORPHONE
     Dosage: 0.2MG=0.1ML, EVERY 5 MINUTES AS NEEDED, PACU 1; MAX 2MG
     Route: 042
     Dates: start: 20210309, end: 20210309
  13. PERCOCET [Concomitant]
     Active Substance: ACETAMINOPHEN\OXYCODONE HYDROCHLORIDE
     Dosage: 1 TABS; EVERY 4 HOURS AS NEEDED
     Route: 048
     Dates: start: 20210309, end: 20210309
  14. FENTANYL. [Concomitant]
     Active Substance: FENTANYL
     Dosage: 25 MCG=0.5ML, EVERY 5 MINUTES AS NEEDED, PACU 1; MAX 25MCG
     Route: 042
     Dates: start: 20210309, end: 20210309
  15. ACETAMINOPHEN. [Concomitant]
     Active Substance: ACETAMINOPHEN
     Dosage: 1000 ML, ONCE
     Route: 042
     Dates: start: 20210309, end: 20210309
  16. ROBINUL [Concomitant]
     Active Substance: GLYCOPYRROLATE
     Dosage: 0.2MG= 1ML; EVERY 2 MIN AS NEEDED
     Route: 042
     Dates: start: 20210309, end: 20210309
  17. ONDANSETRON [Concomitant]
     Active Substance: ONDANSETRON
     Dosage: 4MG=1TABS, EVERY 6 HOURS AS NEEDED
     Route: 048
     Dates: start: 20210309, end: 20210309
  18. PERCOCET [Concomitant]
     Active Substance: ACETAMINOPHEN\OXYCODONE HYDROCHLORIDE
     Dosage: 1 TABS
     Route: 048
     Dates: start: 20210306, end: 20210306
  19. PERCOCET [Concomitant]
     Active Substance: ACETAMINOPHEN\OXYCODONE HYDROCHLORIDE
     Dosage: 2 TABS; EVERY 4 HOURS AS NEEDED
     Route: 048
     Dates: start: 20210309, end: 20210309
  20. ATROPINE. [Concomitant]
     Active Substance: ATROPINE
     Dosage: 0.2 MG=0.2 ML; EVERY 2 MIN AS NEEDED. ORDER DURATION: 4 DOSES, PACU1; MAX 2MG
     Route: 042
     Dates: start: 20210309, end: 20210309
  21. PROPOFOL. [Concomitant]
     Active Substance: PROPOFOL
     Dosage: 180MG= 18ML, ONCE
     Route: 042
     Dates: start: 20210309, end: 20210309
  22. LORTAB [Concomitant]
     Active Substance: ACETAMINOPHEN\HYDROCODONE BITARTRATE
     Dosage: EVERY 6 HOURS AS NEEDED, 28 TABS
     Route: 048
     Dates: start: 20210309, end: 20210309
  23. SENNA [Concomitant]
     Active Substance: SENNA LEAF\SENNOSIDES\SENNOSIDES A AND B
     Dosage: 50 MG ? 8.6 MG, DAILY
     Route: 048
     Dates: start: 20210310, end: 20210310
  24. ONDANSETRON [Concomitant]
     Active Substance: ONDANSETRON
     Dosage: 4MG=2ML, EVERY 30MIN AS NEEDED, PACU L; MAX 8MG
     Route: 041
     Dates: start: 20210309, end: 20210309
  25. PROMETHAZINE [Concomitant]
     Active Substance: PROMETHAZINE HYDROCHLORIDE
     Dosage: 25MG=1TABS, EVERY 6 HOURS AS NEEDED
     Route: 048
     Dates: start: 20210309, end: 20210309
  26. DEXAMETHASONE. [Concomitant]
     Active Substance: DEXAMETHASONE
     Dosage: 8 MG = 2 ML, ONCE
     Route: 042
     Dates: start: 20210309, end: 20210309
  27. CEFAZOLIN [Concomitant]
     Active Substance: CEFAZOLIN
     Dosage: 2 MG, ONCE
     Route: 042
     Dates: start: 20210309, end: 20210309
  28. PROMETHAZINE [Concomitant]
     Active Substance: PROMETHAZINE HYDROCHLORIDE
     Dosage: 3MG=0.12ML, EVERY 15MIN AS NEEDED, PACU L; MAX 12MG
     Route: 041
     Dates: start: 20210309, end: 20210309
  29. MAALOX30 [Concomitant]
     Dosage: 30 ML; 3 TIMES DAILY AS NEEDED
     Route: 048
     Dates: start: 20210309, end: 20210309
  30. DOCUSATE [Concomitant]
     Active Substance: DOCUSATE
     Dosage: 100MG=1CAPS, TWICE A DAY AS NEEDED
     Route: 048
     Dates: start: 20210309, end: 20210309
  31. NCTR [Concomitant]
     Dosage: AS INDICATED AS NEEDED
     Route: 058
     Dates: start: 20210309, end: 20210309
  32. IBUPROFEN. [Concomitant]
     Active Substance: IBUPROFEN
     Dosage: 600 MG = 1 TABS, EVERY 8 HOURS, 30 TABS
     Route: 048
     Dates: start: 20210309, end: 20210309

REACTIONS (6)
  - Hypoaesthesia [Recovered/Resolved]
  - Drug-induced liver injury [Recovered/Resolved]
  - Vomiting [Recovered/Resolved]
  - Hepatic enzyme increased [Recovered/Resolved]
  - Labelled drug-drug interaction medication error [Unknown]
  - Nausea [Recovered/Resolved]

NARRATIVE: CASE EVENT DATE: 20210309
